FAERS Safety Report 17111637 (Version 2)
Quarter: 2019Q4

REPORT INFORMATION
  Report Type: Report from Study
  Country: None (occurrence: DE)
  Receive Date: 20191204
  Receipt Date: 20191217
  Transmission Date: 20200122
  Serious: Yes (Hospitalization)
  Sender: FDA-Public Use
  Company Number: DE-ABBVIE-19P-062-3181314-00

PATIENT
  Age: 45 Year
  Sex: Female
  Weight: 83 kg

DRUGS (4)
  1. L-THYROXIN [Concomitant]
     Active Substance: LEVOTHYROXINE SODIUM
     Indication: THYROIDECTOMY
     Route: 048
     Dates: start: 1991
  2. SKYRIZI [Suspect]
     Active Substance: RISANKIZUMAB-RZAA
     Indication: PSORIASIS
     Route: 058
     Dates: start: 20190919
  3. CORTISONE [Concomitant]
     Active Substance: CORTISONE
     Indication: PSORIATIC ARTHROPATHY
     Route: 048
     Dates: start: 201701
  4. PREDNISOLON [Concomitant]
     Active Substance: PREDNISOLONE
     Indication: PSORIATIC ARTHROPATHY
     Route: 048
     Dates: start: 201902

REACTIONS (4)
  - Fall [Recovering/Resolving]
  - White blood cell count increased [Unknown]
  - Road traffic accident [Recovering/Resolving]
  - Humerus fracture [Recovering/Resolving]

NARRATIVE: CASE EVENT DATE: 20190926
